FAERS Safety Report 21364264 (Version 1)
Quarter: 2022Q3

REPORT INFORMATION
  Report Type: Other
  Country: US (occurrence: None)
  Receive Date: 20220922
  Receipt Date: 20220922
  Transmission Date: 20221027
  Serious: Yes (Death)
  Sender: FDA-Public Use
  Company Number: US-ROCHE-3184726

PATIENT
  Age: 58 Year

DRUGS (5)
  1. MYCOPHENOLATE MOFETIL [Suspect]
     Active Substance: MYCOPHENOLATE MOFETIL
     Indication: Prophylaxis against transplant rejection
     Route: 065
  2. CISPLATIN [Concomitant]
     Active Substance: CISPLATIN
     Dosage: 4 CYCLE
  3. PEMETREXED [Concomitant]
     Active Substance: PEMETREXED
     Dosage: 4 CYCLE
  4. CARBOPLATIN [Concomitant]
     Active Substance: CARBOPLATIN
     Dosage: DAY 1
  5. GEMCITABINE [Concomitant]
     Active Substance: GEMCITABINE
     Dosage: DAY 1 AND 8 EVERY 21 DAYS - 4 CYCLES

REACTIONS (1)
  - Metastatic neoplasm [Fatal]
